FAERS Safety Report 7503701-1 (Version None)
Quarter: 2011Q2

REPORT INFORMATION
  Report Type: 
  Country: None (occurrence: None)
  Receive Date: 20110525
  Receipt Date: 20110517
  Transmission Date: 20111010
  Serious: Yes (Other)
  Sender: FDA-Public Use
  Company Number: US-US-EMD SERONO, INC.-7060458

PATIENT
  Sex: Female

DRUGS (2)
  1. REBIF [Suspect]
     Indication: PRODUCT USED FOR UNKNOWN INDICATION
     Route: 058
     Dates: start: 20080409
  2. INTRAVENOUS STEROIDS [Concomitant]
     Indication: DISEASE PROGRESSION
     Dates: start: 20110501, end: 20110501

REACTIONS (5)
  - INJECTION SITE ERYTHEMA [None]
  - SELF-INJURIOUS IDEATION [None]
  - STRESS [None]
  - DEPRESSION [None]
  - CONDITION AGGRAVATED [None]
